FAERS Safety Report 9288292 (Version 1)
Quarter: 2013Q2

REPORT INFORMATION
  Report Type: Spontaneous
  Country: US (occurrence: US)
  Receive Date: 20130514
  Receipt Date: 20130514
  Transmission Date: 20140414
  Serious: No
  Sender: FDA-Public Use
  Company Number: US-OPTIMER PHARMACEUTICALS, INC.-20110013

PATIENT
  Sex: 0

DRUGS (9)
  1. DIFICID [Suspect]
     Indication: CLOSTRIDIUM DIFFICILE COLITIS
     Dosage: 200 MG, BID
     Route: 048
     Dates: start: 20110801, end: 20110805
  2. VITAMIN C [Concomitant]
     Dosage: 500 MG, UNK
  3. B COMPLEX [Concomitant]
     Dosage: 1/2 TABLET
  4. ZINC [Concomitant]
     Dosage: 3 MG, UNK
  5. MULTIVITAMIN [Concomitant]
     Dosage: UNK
  6. OMEGA 3 [Concomitant]
     Dosage: 360 MG, UNK
  7. FISH OIL [Concomitant]
     Dosage: 1200 UNITS
  8. VITAMIN D NOS [Concomitant]
     Dosage: 400 IU, UNK
  9. CALCIUM [Concomitant]
     Dosage: UNK

REACTIONS (6)
  - Drug hypersensitivity [Recovered/Resolved]
  - Palpitations [Recovered/Resolved]
  - Erythema [Recovered/Resolved]
  - Feeling hot [Recovered/Resolved]
  - Paraesthesia [Recovered/Resolved]
  - Rash [Recovered/Resolved]
